FAERS Safety Report 8900001 (Version 1)
Quarter: 2012Q4

REPORT INFORMATION
  Report Type: 
  Country: US (occurrence: US)
  Receive Date: 20121108
  Receipt Date: 20121108
  Transmission Date: 20130627
  Serious: No
  Sender: FDA-Public Use
  Company Number: US-AMGEN-USASP2012036830

PATIENT
  Age: 31 Year
  Sex: Female

DRUGS (4)
  1. ENBREL [Suspect]
     Indication: PSORIATIC ARTHROPATHY
     Dosage: 50 mg, 2 times/wk
     Route: 058
     Dates: start: 20120525, end: 20120604
  2. HYDROCODONE/APAP [Concomitant]
  3. SOMA [Concomitant]
  4. ORTHO TRI CYCLEN [Concomitant]

REACTIONS (2)
  - Swelling face [Recovered/Resolved]
  - Injection site urticaria [Recovered/Resolved]
